FAERS Safety Report 9160442 (Version 2)
Quarter: 2013Q2

REPORT INFORMATION
  Report Type: Spontaneous
  Country: CH (occurrence: None)
  Receive Date: 20130219
  Receipt Date: 20130424
  Transmission Date: 20140414
  Serious: Yes (Other)
  Sender: FDA-Public Use
  Company Number: INT_00206_2013

PATIENT
  Age: 73 Year
  Sex: Male
  Weight: 85 kg

DRUGS (2)
  1. CEFEPIME [Suspect]
     Indication: FEBRILE NEUTROPENIA
     Dosage: 2 G 1X/8 HOURS  UNTIL NOT CONTINUING?
  2. CYTARABINE [Concomitant]

REACTIONS (4)
  - Depressed level of consciousness [None]
  - Glomerular filtration rate decreased [None]
  - Neurotoxicity [None]
  - Overdose [None]
